FAERS Safety Report 20962987 (Version 1)
Quarter: 2022Q2

REPORT INFORMATION
  Report Type: Spontaneous
  Country: US (occurrence: None)
  Receive Date: 20220615
  Receipt Date: 20220615
  Transmission Date: 20220721
  Serious: Yes (Hospitalization)
  Sender: FDA-Public Use
  Company Number: None

PATIENT
  Sex: Female
  Weight: 61.5 kg

DRUGS (2)
  1. PERTUZUMAB [Suspect]
     Active Substance: PERTUZUMAB
     Dates: end: 20220503
  2. HERCEPTIN [Suspect]
     Active Substance: TRASTUZUMAB
     Dates: end: 20220503

REACTIONS (6)
  - Leukocytosis [None]
  - Staphylococcus test positive [None]
  - Abscess [None]
  - Discomfort [None]
  - Cellulitis [None]
  - Hypertension [None]

NARRATIVE: CASE EVENT DATE: 20220515
